FAERS Safety Report 5150209-7 (Version None)
Quarter: 2006Q4

REPORT INFORMATION
  Report Type: 
  Country: None (occurrence: None)
  Receive Date: 20061108
  Receipt Date: 20061101
  Transmission Date: 20070319
  Serious: Yes (Death, Hospitalization)
  Sender: FDA-Public Use
  Company Number: 232025

PATIENT
  Age: 89 Year
  Sex: Female

DRUGS (18)
  1. RANIBIZUMAB (RANIBIZUMAB) PWDR + SOLVENT, INJECTION SOLN [Suspect]
     Indication: MACULAR DEGENERATION
     Dosage: INTAVITREAL
     Dates: start: 20060522
  2. XALATAN EYE GTTS (LATANOPROST) [Concomitant]
  3. LASIX [Concomitant]
  4. LANOXIN [Concomitant]
  5. VASOTEC [Concomitant]
  6. CARDIZEM [Concomitant]
  7. PREVACID [Concomitant]
  8. MYSOLINE [Concomitant]
  9. PRESERVISION AREDS (ASCORBIC ACID, COPPER, VITAMIN A, VITAMIN E, ZINC [Concomitant]
  10. OS-CAL (CALCIUM CARBONATE) [Concomitant]
  11. ASPIRIN [Concomitant]
  12. SIMETHICONE (SIMETHICONE) [Concomitant]
  13. DARVOCET-N 100 (ACETAMINOPHEN, PROPOXYPHENE NAPSYLATE) [Concomitant]
  14. DITROPAN [Concomitant]
  15. VALIUM [Concomitant]
  16. AMOXICILLIN [Concomitant]
  17. VISUDYNE [Concomitant]
  18. KENALOG [Concomitant]

REACTIONS (1)
  - DEATH [None]
